FAERS Safety Report 10544145 (Version 2)
Quarter: 2014Q4

REPORT INFORMATION
  Report Type: Report from Study
  Country: GH (occurrence: GH)
  Receive Date: 20141027
  Receipt Date: 20141031
  Transmission Date: 20150529
  Serious: Yes (Death, Hospitalization)
  Sender: FDA-Public Use
  Company Number: PHHY2014GH138460

PATIENT
  Age: 29 Year
  Sex: Female
  Weight: 47 kg

DRUGS (4)
  1. GLIVEC [Suspect]
     Active Substance: IMATINIB MESYLATE
     Indication: CHRONIC MYELOID LEUKAEMIA
     Dosage: 400 MG, DAILY
     Route: 048
     Dates: end: 20140515
  2. GLIVEC [Suspect]
     Active Substance: IMATINIB MESYLATE
     Dosage: 600 MG, DAILY
     Route: 048
     Dates: start: 20140725, end: 20140815
  3. GLIVEC [Suspect]
     Active Substance: IMATINIB MESYLATE
     Indication: CHRONIC MYELOID LEUKAEMIA
     Dosage: 400 MG, DAILY
     Route: 048
     Dates: start: 20130924
  4. GLIVEC [Suspect]
     Active Substance: IMATINIB MESYLATE
     Indication: ACUTE MYELOID LEUKAEMIA
     Dosage: 600 MG, DAILY
     Route: 048
     Dates: start: 20140515, end: 20140714

REACTIONS (6)
  - White blood cell count decreased [Unknown]
  - Myeloblast percentage increased [Unknown]
  - Chromosome analysis abnormal [Unknown]
  - No therapeutic response [Unknown]
  - Blast crisis in myelogenous leukaemia [Fatal]
  - Anaemia [Unknown]

NARRATIVE: CASE EVENT DATE: 20140703
